FAERS Safety Report 19926000 (Version 1)
Quarter: 2021Q4

REPORT INFORMATION
  Report Type: Spontaneous
  Country: US (occurrence: US)
  Receive Date: 20211006
  Receipt Date: 20211006
  Transmission Date: 20220303
  Serious: No
  Sender: FDA-Public Use
  Company Number: US-MYLANLABS-2021M1061180

PATIENT
  Sex: Female

DRUGS (1)
  1. NORETHINDRONE [Suspect]
     Active Substance: NORETHINDRONE
     Indication: Product used for unknown indication
     Dosage: UNK

REACTIONS (1)
  - Product storage error [Unknown]
